FAERS Safety Report 8112988-6 (Version None)
Quarter: 2012Q1

REPORT INFORMATION
  Report Type: 
  Country: None (occurrence: None)
  Receive Date: 20120203
  Receipt Date: 20120123
  Transmission Date: 20120608
  Serious: Yes (Hospitalization)
  Sender: FDA-Public Use
  Company Number: US-ELI_LILLY_AND_COMPANY-US201010000839

PATIENT
  Sex: Female
  Weight: 58.5 kg

DRUGS (18)
  1. FORTEO [Suspect]
     Dosage: 20 UG, QD
     Route: 065
  2. NOVOLOG [Concomitant]
     Dosage: 2 U, QD
  3. SIMVASTATIN [Concomitant]
     Dosage: 20 MG, QD
  4. ACTOS [Concomitant]
     Dosage: 30 MG, QD
  5. FENOFIBRATE [Concomitant]
     Dosage: 160 MG, QD
  6. FORTEO [Suspect]
     Dosage: 20 UG, QD
     Route: 065
  7. HYZAAR [Concomitant]
     Dosage: 1 DF, QD
  8. VITAMIN D [Concomitant]
     Dosage: 1000 IU, QD
  9. LANTUS [Concomitant]
     Dosage: 13 U, QD
  10. TEMAZEPAM [Concomitant]
     Dosage: 30 MG, QD
  11. FORTEO [Suspect]
     Dosage: 20 UG, QD
     Route: 065
  12. FORTEO [Suspect]
     Indication: OSTEOPOROSIS
     Dosage: 20 UG, DAILY (1/D)
     Route: 065
     Dates: start: 20100917
  13. LANTUS [Concomitant]
     Indication: TYPE 2 DIABETES MELLITUS
     Dosage: 17 U, QD
  14. LANTUS [Concomitant]
     Dosage: 15 U, QD
  15. FORTEO [Suspect]
     Dosage: 20 UG, DAILY (1/D)
     Route: 065
  16. NOVOLOG [Concomitant]
     Indication: TYPE 2 DIABETES MELLITUS
     Dosage: 4 U, OTHER
  17. NOVOLOG [Concomitant]
     Dosage: 3 U, QD
  18. GABAPENTIN [Concomitant]
     Dosage: 100 MG, BID

REACTIONS (10)
  - DIARRHOEA [None]
  - FEELING HOT [None]
  - ASTHENIA [None]
  - CHONDROPATHY [None]
  - TYPE 2 DIABETES MELLITUS [None]
  - FEELING COLD [None]
  - HOT FLUSH [None]
  - PYREXIA [None]
  - HYPERSENSITIVITY [None]
  - PRURITUS [None]
